FAERS Safety Report 9032363 (Version 1)
Quarter: 2013Q1

REPORT INFORMATION
  Report Type: Spontaneous
  Country: JP (occurrence: JP)
  Receive Date: 20130125
  Receipt Date: 20130125
  Transmission Date: 20140127
  Serious: Yes (Death)
  Sender: FDA-Public Use
  Company Number: JP-ABBOTT-13P-087-1040141-00

PATIENT
  Age: 64 Year
  Sex: Female

DRUGS (15)
  1. HUMIRA [Suspect]
     Indication: CROHN^S DISEASE
     Route: 058
     Dates: start: 20110711, end: 20110711
  2. HUMIRA [Suspect]
  3. HUMIRA [Suspect]
     Dates: end: 20130107
  4. MESALAZINE [Concomitant]
     Indication: CROHN^S DISEASE
     Route: 048
     Dates: end: 20130114
  5. L-CARBOCISTEINE [Concomitant]
     Indication: INTERSTITIAL LUNG DISEASE
     Route: 048
     Dates: end: 20130114
  6. FAMOTIDINE [Concomitant]
     Indication: GASTROOESOPHAGEAL REFLUX DISEASE
     Route: 048
     Dates: end: 20130114
  7. BIFIDOBACTERIUM [Concomitant]
     Indication: GASTROINTESTINAL DISORDER
     Route: 048
     Dates: end: 20130114
  8. HUSCODE [Concomitant]
     Indication: COUGH
     Route: 048
     Dates: end: 20130114
  9. VERAPAMIL HYDROCHLORIDE [Concomitant]
     Indication: ARRHYTHMIA
     Route: 048
     Dates: end: 20130114
  10. BROTIZOLAM [Concomitant]
     Indication: INSOMNIA
     Route: 048
     Dates: end: 20130114
  11. MONTELUKAST SODIUM [Concomitant]
     Indication: INSOMNIA
     Route: 048
     Dates: end: 20130114
  12. TULOBUTEROL [Concomitant]
     Indication: ASTHMA
     Route: 062
     Dates: end: 20130114
  13. PREDNISOLONE [Concomitant]
     Indication: CROHN^S DISEASE
     Route: 048
     Dates: end: 20130114
  14. ALPRAZOLAM [Concomitant]
     Indication: ANXIETY
     Route: 048
     Dates: end: 20130114
  15. PRAMIPEXOLE HYDROCHLORIDE MONOHYDRATE [Concomitant]
     Indication: PARKINSON^S DISEASE
     Route: 048
     Dates: end: 20130114

REACTIONS (1)
  - Cardiac failure acute [Fatal]
